FAERS Safety Report 22981463 (Version 2)
Quarter: 2024Q1

REPORT INFORMATION
  Report Type: Report from Study
  Country: US (occurrence: US)
  Receive Date: 20230925
  Receipt Date: 20240114
  Transmission Date: 20240410
  Serious: Yes (Death, Hospitalization, Other)
  Sender: FDA-Public Use
  Company Number: US-ABBVIE-5421842

PATIENT
  Sex: Male
  Weight: 71 kg

DRUGS (2)
  1. VENCLEXTA [Suspect]
     Active Substance: VENETOCLAX
     Indication: Myelodysplastic syndrome
     Dosage: FORM STRENGTH: 100 MG TABLET?TAKE ONE TABLET BY MOUTH DAILY FOR 14 DAYS THEN 14 DAYS OFF EVERY 28...
     Route: 048
     Dates: start: 20221031, end: 20221104
  2. VENCLEXTA [Suspect]
     Active Substance: VENETOCLAX
     Indication: Myelodysplastic syndrome
     Dosage: END DATE: 2023
     Route: 048
     Dates: start: 20230130

REACTIONS (3)
  - Leukaemia [Fatal]
  - Off label use [Unknown]
  - Hospice care [Unknown]
